FAERS Safety Report 7337476-6 (Version None)
Quarter: 2011Q1

REPORT INFORMATION
  Report Type: 
  Country: None (occurrence: None)
  Receive Date: 20110224
  Receipt Date: 20110216
  Transmission Date: 20110831
  Serious: Yes (Hospitalization, Other)
  Sender: FDA-Public Use
  Company Number: 2010SP054999

PATIENT
  Age: 19 Year
  Sex: Female
  Weight: 54.4316 kg

DRUGS (5)
  1. NUVARING [Suspect]
     Indication: OVARIAN CYST
     Dosage: 1 DF;QM;VAG
     Route: 067
     Dates: start: 20081006, end: 20081125
  2. NUVARING [Suspect]
     Indication: MENORRHAGIA
     Dosage: 1 DF;QM;VAG
     Route: 067
     Dates: start: 20081006, end: 20081125
  3. NUVARING [Suspect]
     Indication: CONTRACEPTION
     Dosage: 1 DF;QM;VAG
     Route: 067
     Dates: start: 20081006, end: 20081125
  4. NUVARING [Suspect]
     Indication: MENSTRUAL DISORDER
     Dosage: 1 DF;QM;VAG
     Route: 067
     Dates: start: 20081006, end: 20081125
  5. NUVARING [Suspect]
     Indication: DYSMENORRHOEA
     Dosage: 1 DF;QM;VAG
     Route: 067
     Dates: start: 20081006, end: 20081125

REACTIONS (11)
  - ADNEXA UTERI CYST [None]
  - MAY-THURNER SYNDROME [None]
  - HEADACHE [None]
  - DEEP VEIN THROMBOSIS [None]
  - PROCEDURAL VOMITING [None]
  - VENA CAVA THROMBOSIS [None]
  - PRESYNCOPE [None]
  - VOMITING [None]
  - OVARIAN CYST [None]
  - VENOUS THROMBOSIS [None]
  - INJURY [None]
